FAERS Safety Report 14145813 (Version 2)
Quarter: 2018Q3

REPORT INFORMATION
  Report Type: Report from Study
  Country: CA (occurrence: CA)
  Receive Date: 20171031
  Receipt Date: 20180821
  Transmission Date: 20181010
  Serious: Yes (Other)
  Sender: FDA-Public Use
  Company Number: CA-PFIZER INC-2017466985

PATIENT
  Age: 71 Year
  Sex: Male

DRUGS (6)
  1. PREDNISONE. [Concomitant]
     Active Substance: PREDNISONE
     Dosage: UNK
  2. PANTOLOC [Suspect]
     Active Substance: PANTOPRAZOLE SODIUM
     Dosage: 20 MG, QD
     Route: 065
  3. ASPIRIN. [Concomitant]
     Active Substance: ASPIRIN
     Dosage: 81 MG, UNK
  4. LIPIDIL [Concomitant]
     Active Substance: FENOFIBRATE
     Dosage: 160 MG, QD
  5. ENTYVIO [Suspect]
     Active Substance: VEDOLIZUMAB
     Indication: COLITIS ULCERATIVE
     Dosage: 300 MG, UNK
     Route: 042
     Dates: start: 20170425
  6. ENTYVIO [Suspect]
     Active Substance: VEDOLIZUMAB
     Dosage: 600 MG, UNK
     Route: 042
     Dates: start: 20180223

REACTIONS (3)
  - Frequent bowel movements [Not Recovered/Not Resolved]
  - Haematochezia [Unknown]
  - Diarrhoea [Unknown]
